FAERS Safety Report 10464592 (Version 2)
Quarter: 2014Q3

REPORT INFORMATION
  Report Type: Report from Study
  Country: US (occurrence: US)
  Receive Date: 20140919
  Receipt Date: 20140919
  Transmission Date: 20150326
  Serious: Yes (Hospitalization, Other)
  Sender: FDA-Public Use
  Company Number: US-BAYER-2014-094289

PATIENT
  Age: 76 Year
  Sex: Male

DRUGS (5)
  1. MEGESTROL [Suspect]
     Active Substance: MEGESTROL
  2. TRIAMCINOLONE ACETONIDE. [Concomitant]
     Active Substance: TRIAMCINOLONE ACETONIDE
  3. NEXAVAR [Suspect]
     Active Substance: SORAFENIB
     Indication: HEPATIC CANCER
     Dosage: 400 MG, BID
     Route: 048
     Dates: end: 201408
  4. NEXAVAR [Suspect]
     Active Substance: SORAFENIB
     Indication: HEPATIC CANCER
     Dosage: 400 MG, BID
     Route: 048
     Dates: start: 20140611, end: 20140618
  5. PRAMIPEXOLE [Concomitant]
     Active Substance: PRAMIPEXOLE

REACTIONS (11)
  - Skin exfoliation [Unknown]
  - Hospitalisation [None]
  - Erythema [None]
  - Skin warm [None]
  - Local swelling [Unknown]
  - Swelling face [Recovering/Resolving]
  - Erythema [Recovering/Resolving]
  - Rash [Unknown]
  - Hospitalisation [None]
  - Pain in extremity [Unknown]
  - Swelling face [None]

NARRATIVE: CASE EVENT DATE: 20140616
